FAERS Safety Report 15690253 (Version 1)
Quarter: 2018Q4

REPORT INFORMATION
  Report Type: Spontaneous
  Country: US (occurrence: US)
  Receive Date: 20181205
  Receipt Date: 20181205
  Transmission Date: 20190205
  Serious: Yes (Other)
  Sender: FDA-Public Use
  Company Number: US-DOVA PHARMACEUTICALS INC.-DOV-000209

PATIENT
  Sex: Female

DRUGS (1)
  1. DOPTELET [Suspect]
     Active Substance: AVATROMBOPAG MALEATE
     Indication: OESOPHAGEAL VARICEAL LIGATION
     Dosage: 40 MG, QD
     Route: 048
     Dates: start: 201807

REACTIONS (2)
  - Thrombosis [Unknown]
  - Product administration error [Unknown]
